FAERS Safety Report 7532463-7 (Version None)
Quarter: 2011Q2

REPORT INFORMATION
  Report Type: 
  Country: None (occurrence: None)
  Receive Date: 20110608
  Receipt Date: 20110425
  Transmission Date: 20111010
  Serious: Yes (Other)
  Sender: FDA-Public Use
  Company Number: PHHY2011US35042

PATIENT
  Sex: Female
  Weight: 66.667 kg

DRUGS (1)
  1. BUFFERIN [Suspect]
     Dosage: 325 MG, QD
     Route: 048
     Dates: start: 20080901

REACTIONS (1)
  - MYOCARDIAL INFARCTION [None]
